FAERS Safety Report 15274632 (Version 3)
Quarter: 2022Q1

REPORT INFORMATION
  Report Type: Spontaneous
  Country: CH (occurrence: CH)
  Receive Date: 20180814
  Receipt Date: 20220131
  Transmission Date: 20220423
  Serious: Yes (Congenital Anomaly)
  Sender: FDA-Public Use
  Company Number: None

PATIENT
  Age: 0 Year
  Sex: Female
  Weight: 2.37 kg

DRUGS (4)
  1. IBUPROFEN [Suspect]
     Active Substance: IBUPROFEN
     Indication: Fibromyalgia
     Route: 064
     Dates: end: 20170901
  2. VOLTAREN [Suspect]
     Active Substance: DICLOFENAC SODIUM
     Indication: Fibromyalgia
     Route: 064
     Dates: end: 20170901
  3. TRAMADOL [Suspect]
     Active Substance: TRAMADOL
     Indication: Fibromyalgia
     Dosage: AS NECESSARY
     Route: 064
     Dates: end: 20170901
  4. XANAX [Suspect]
     Active Substance: ALPRAZOLAM
     Indication: Anxiety
     Route: 064
     Dates: end: 20170901

REACTIONS (2)
  - Congenital pyelocaliectasis [Unknown]
  - Maternal exposure during pregnancy [Recovered/Resolved]

NARRATIVE: CASE EVENT DATE: 20170701
